FAERS Safety Report 5367309-9 (Version None)
Quarter: 2007Q2

REPORT INFORMATION
  Report Type: 
  Country: None (occurrence: None)
  Receive Date: 20070622
  Receipt Date: 20060522
  Transmission Date: 20071010
  Serious: No
  Sender: FDA-Public Use
  Company Number: US-ASTRAZENECA-2006UW09977

PATIENT
  Sex: Female

DRUGS (6)
  1. PULMICORT [Suspect]
     Route: 055
  2. DUONEB [Concomitant]
  3. METHOTREXATE [Concomitant]
  4. DICLOFENAC [Concomitant]
  5. THYROID TAB [Concomitant]
  6. AMITRIPTYLINE HCL [Concomitant]

REACTIONS (1)
  - HYPERVENTILATION [None]
